FAERS Safety Report 7743862 (Version 3)
Quarter: 2014Q3

REPORT INFORMATION
  Report Type: Spontaneous
  Country: US (occurrence: US)
  Receive Date: 20101230
  Receipt Date: 20140714
  Transmission Date: 20150326
  Serious: Yes (Life-Threatening, Hospitalization)
  Sender: FDA-Public Use
  Company Number: US-PFIZER INC-K201001527

PATIENT
  Age: 20 Year
  Sex: Male

DRUGS (4)
  1. SEPTRA [Suspect]
     Active Substance: SULFAMETHOXAZOLE\TRIMETHOPRIM
     Indication: TENOSYNOVITIS
     Dosage: 1 DF, UNK
     Route: 048
  2. DOXYCYCLINE HYCLATE. [Suspect]
     Active Substance: DOXYCYCLINE HYCLATE
     Indication: TENOSYNOVITIS
     Dosage: UNK
     Route: 065
  3. CEFTRIAXONE SODIUM. [Suspect]
     Active Substance: CEFTRIAXONE SODIUM
     Indication: TENOSYNOVITIS
     Dosage: 1 DF, SINGLE
     Route: 065
  4. VANCOMYCIN HCL [Suspect]
     Active Substance: VANCOMYCIN HYDROCHLORIDE
     Indication: TENOSYNOVITIS
     Dosage: 1 DF, SINGLE
     Route: 065

REACTIONS (22)
  - Pyrexia [Recovering/Resolving]
  - Drug eruption [Recovering/Resolving]
  - Transaminases increased [Recovering/Resolving]
  - Eosinophilia [Recovering/Resolving]
  - Renal failure [Recovering/Resolving]
  - Leukocytosis [Recovering/Resolving]
  - Dermatitis exfoliative [Recovering/Resolving]
  - Human herpesvirus 6 infection [Recovering/Resolving]
  - Septic shock [Unknown]
  - Disseminated intravascular coagulation [Recovering/Resolving]
  - Malaise [Recovering/Resolving]
  - Lymphocytosis [Recovering/Resolving]
  - Lichenoid keratosis [Recovering/Resolving]
  - Drug reaction with eosinophilia and systemic symptoms [Recovering/Resolving]
  - Myalgia [Recovering/Resolving]
  - Skin exfoliation [Recovering/Resolving]
  - Respiratory failure [Recovering/Resolving]
  - Upper respiratory tract irritation [Recovering/Resolving]
  - Splenic infarction [Recovering/Resolving]
  - Rash [Recovering/Resolving]
  - Lymphadenopathy [Recovering/Resolving]
  - Generalised oedema [Recovering/Resolving]
